FAERS Safety Report 6503031-0 (Version None)
Quarter: 2009Q4

REPORT INFORMATION
  Report Type: 
  Country: None (occurrence: None)
  Receive Date: 20091217
  Receipt Date: 20091210
  Transmission Date: 20100525
  Serious: Yes (Other)
  Sender: FDA-Public Use
  Company Number: ZA-ROCHE-665592

PATIENT
  Sex: Female
  Weight: 47 kg

DRUGS (1)
  1. MIRCERA [Suspect]
     Dosage: LAST DATE OF ADMINISTRATION BEFORE THE ANTI ERYTHROPOEITIN AND ANTI CERA ANTIBODYTEST ON 09 OCT 2009
     Route: 065
     Dates: start: 20090801

REACTIONS (1)
  - HAEMOGLOBIN DECREASED [None]
